FAERS Safety Report 19242682 (Version 3)
Quarter: 2021Q3

REPORT INFORMATION
  Report Type: Spontaneous
  Country: ES (occurrence: ES)
  Receive Date: 20210510
  Receipt Date: 20210716
  Transmission Date: 20211014
  Serious: Yes (Death, Hospitalization, Other)
  Sender: FDA-Public Use
  Company Number: ES-AUROBINDO-AUR-APL-2017-08436

PATIENT
  Age: 19 Year
  Sex: Female
  Weight: 75 kg

DRUGS (4)
  1. TOPIRAMATE. [Suspect]
     Active Substance: TOPIRAMATE
     Dosage: 100 MILLIGRAM, DAILY
     Route: 065
  2. VENLAFAXINE [Suspect]
     Active Substance: VENLAFAXINE HYDROCHLORIDE
     Indication: PRODUCT USED FOR UNKNOWN INDICATION
     Dosage: 150 MILLIGRAM, ONCE A DAY
     Route: 065
  3. TOPIRAMATE. [Suspect]
     Active Substance: TOPIRAMATE
     Indication: PRODUCT USED FOR UNKNOWN INDICATION
     Dosage: 200 MILLIGRAM, ONCE A DAY IN THE MORNING
     Route: 065
  4. QUETIAPINE. [Suspect]
     Active Substance: QUETIAPINE
     Indication: PRODUCT USED FOR UNKNOWN INDICATION
     Dosage: 300 MILLIGRAM, ONCE A DAY(EVENING)
     Route: 065

REACTIONS (13)
  - Generalised tonic-clonic seizure [Fatal]
  - Hypoxic-ischaemic encephalopathy [Fatal]
  - Nosocomial infection [Fatal]
  - Brain oedema [Unknown]
  - Cardiac failure [Fatal]
  - Respiratory disorder [Fatal]
  - Hypoxia [Unknown]
  - Metabolic acidosis [Fatal]
  - Cardiopulmonary failure [Fatal]
  - Overdose [Fatal]
  - Altered state of consciousness [Unknown]
  - Seizure [Unknown]
  - Rhabdomyolysis [Fatal]
